FAERS Safety Report 9321096 (Version 1)
Quarter: 2013Q2

REPORT INFORMATION
  Report Type: Spontaneous
  Country: US (occurrence: None)
  Receive Date: 20130530
  Receipt Date: 20130530
  Transmission Date: 20140414
  Serious: No
  Sender: FDA-Public Use
  Company Number: None

PATIENT
  Sex: Female
  Weight: 48.5 kg

DRUGS (2)
  1. TOPOMAX [Suspect]
     Route: 048
     Dates: start: 200908
  2. KEPPRA [Suspect]
     Dosage: KEPPRA 500 MG 3 TABS BID PO
     Route: 048
     Dates: start: 200908

REACTIONS (5)
  - Convulsion [None]
  - Status epilepticus [None]
  - Product substitution issue [None]
  - Therapeutic response unexpected with drug substitution [None]
  - Condition aggravated [None]
